FAERS Safety Report 19399879 (Version 1)
Quarter: 2021Q2

REPORT INFORMATION
  Report Type: Spontaneous
  Country: CN (occurrence: CN)
  Receive Date: 20210610
  Receipt Date: 20210610
  Transmission Date: 20210717
  Serious: Yes (Life-Threatening, Other)
  Sender: FDA-Public Use
  Company Number: CN-PURDUE-USA-2021-0269225

PATIENT
  Age: 72 Year
  Sex: Male
  Weight: 60.4 kg

DRUGS (3)
  1. OXYCONTIN [Suspect]
     Active Substance: OXYCODONE HYDROCHLORIDE
     Indication: CANCER PAIN
     Dosage: 20 MG, Q12H
     Route: 048
     Dates: start: 20210510, end: 20210513
  2. MORPHINE HYDROCHLORIDE [Suspect]
     Active Substance: MORPHINE HYDROCHLORIDE
     Indication: BREAKTHROUGH PAIN
  3. MORPHINE HYDROCHLORIDE [Suspect]
     Active Substance: MORPHINE HYDROCHLORIDE
     Indication: CANCER PAIN
     Dosage: 20 MG, BID
     Route: 048
     Dates: start: 20210513, end: 20210513

REACTIONS (11)
  - Hypopnoea [Recovering/Resolving]
  - Toxicity to various agents [Recovering/Resolving]
  - Confusional state [Recovering/Resolving]
  - Dyspnoea [Recovering/Resolving]
  - Hypoxia [Unknown]
  - Miosis [Recovering/Resolving]
  - Somnolence [Recovering/Resolving]
  - Wheezing [Recovering/Resolving]
  - Tachycardia [Unknown]
  - Tachypnoea [Unknown]
  - Hypertension [Unknown]

NARRATIVE: CASE EVENT DATE: 20210513
